FAERS Safety Report 4665395-2 (Version None)
Quarter: 2005Q2

REPORT INFORMATION
  Report Type: 
  Country: None (occurrence: None)
  Receive Date: 20050517
  Receipt Date: 20050504
  Transmission Date: 20051028
  Serious: Yes (Other)
  Sender: FDA-Public Use
  Company Number: 2005071824

PATIENT
  Age: 30 Year
  Sex: Male

DRUGS (2)
  1. VORICONAZOLE (VORICONAZOLE) [Suspect]
     Indication: MENINGITIS COCCIDIOIDES
     Dosage: 800 MG (400 MG, BID), ORAL
     Route: 048
     Dates: start: 20040629, end: 20040729
  2. VORICONAZOLE (VORICONAZOLE) [Suspect]
     Dosage: 800 MG (400 MG, BID),ORAL
     Route: 048
     Dates: start: 20040921

REACTIONS (7)
  - ASTHENIA [None]
  - CONDITION AGGRAVATED [None]
  - HEADACHE [None]
  - IMPAIRED WORK ABILITY [None]
  - MUSCULOSKELETAL STIFFNESS [None]
  - NAUSEA [None]
  - POLYNEUROPATHY [None]
